FAERS Safety Report 7827496-7 (Version None)
Quarter: 2011Q4

REPORT INFORMATION
  Report Type: 
  Country: None (occurrence: None)
  Receive Date: 20111020
  Receipt Date: 20111018
  Transmission Date: 20120403
  Serious: Yes (Other)
  Sender: FDA-Public Use
  Company Number: US-ROCHE-1005593

PATIENT
  Sex: Female

DRUGS (9)
  1. COUMADIN [Concomitant]
  2. LASIX [Concomitant]
     Route: 048
  3. LANTUS [Concomitant]
  4. BONIVA [Suspect]
     Indication: PRODUCT USED FOR UNKNOWN INDICATION
     Route: 042
  5. ADVAIR DISKUS 100/50 [Concomitant]
  6. OSCAP [Concomitant]
  7. DIOVAN [Concomitant]
     Route: 048
  8. ALLOPURINOL [Concomitant]
  9. COREG [Concomitant]
     Route: 048

REACTIONS (1)
  - BLOOD GLUCOSE INCREASED [None]
